FAERS Safety Report 22656283 (Version 5)
Quarter: 2023Q4

REPORT INFORMATION
  Report Type: Spontaneous
  Country: CO (occurrence: CO)
  Receive Date: 20230629
  Receipt Date: 20231207
  Transmission Date: 20240110
  Serious: Yes (Death, Hospitalization, Other)
  Sender: FDA-Public Use
  Company Number: CO-BIOVITRUM-2023-CO-012200

PATIENT

DRUGS (3)
  1. PEGCETACOPLAN [Suspect]
     Active Substance: PEGCETACOPLAN
     Indication: Paroxysmal nocturnal haemoglobinuria
     Dosage: 1080 MILLIGRAM, EVERY TUESDAY AND FRIDAY
     Route: 058
     Dates: start: 20230331, end: 20230616
  2. CARVEDILOL BETA-BLOCKER [Concomitant]
     Indication: Product used for unknown indication
     Dosage: EVERY 12 HOURS
     Route: 048
     Dates: start: 20221005
  3. EMPAVELI [Suspect]
     Active Substance: PEGCETACOPLAN
     Indication: Paroxysmal nocturnal haemoglobinuria
     Dosage: EVERY TUESDAY AND FRIDAY
     Route: 058
     Dates: start: 20230331, end: 20230616

REACTIONS (8)
  - Cardio-respiratory arrest [Fatal]
  - Pain [Unknown]
  - Haemolysis [Unknown]
  - Sinus bradycardia [Unknown]
  - Metabolic acidosis [Unknown]
  - Anaemia [Unknown]
  - Dizziness [Unknown]
  - Choking [Unknown]

NARRATIVE: CASE EVENT DATE: 20230620
